FAERS Safety Report 4577828-0 (Version None)
Quarter: 2005Q1

REPORT INFORMATION
  Report Type: 
  Country: None (occurrence: None)
  Receive Date: 20050209
  Receipt Date: 20050126
  Transmission Date: 20050727
  Serious: Yes (Hospitalization)
  Sender: FDA-Public Use
  Company Number: WAES 0410GBR00029

PATIENT
  Age: 72 Year
  Sex: Male

DRUGS (5)
  1. VIOXX [Suspect]
     Indication: NEOPLASM PROPHYLAXIS
     Dosage: 25 MG/DAILY
     Route: 048
     Dates: start: 20040624, end: 20041004
  2. ACETAMINOPHEN [Concomitant]
  3. ASPIRIN [Concomitant]
  4. KARAYA GUM [Concomitant]
  5. PRAVASTATIN SODIUM [Concomitant]

REACTIONS (8)
  - AMNESIA [None]
  - BLOOD UREA DECREASED [None]
  - CEREBRAL INFARCTION [None]
  - CONFUSIONAL STATE [None]
  - ISCHAEMIC STROKE [None]
  - MEAN CELL HAEMOGLOBIN CONCENTRATION INCREASED [None]
  - MEAN CELL HAEMOGLOBIN INCREASED [None]
  - PLATELET COUNT DECREASED [None]
